FAERS Safety Report 7414121-2 (Version None)
Quarter: 2011Q2

REPORT INFORMATION
  Report Type: 
  Country: None (occurrence: None)
  Receive Date: 20110411
  Receipt Date: 20110411
  Transmission Date: 20111010
  Serious: No
  Sender: FDA-Public Use
  Company Number: None

PATIENT
  Sex: Male

DRUGS (2)
  1. SPIRIVA [Suspect]
     Indication: CHRONIC OBSTRUCTIVE PULMONARY DISEASE
     Dosage: 18 MCG 1 X DAY CP HANDIHALER
     Dates: start: 20110317
  2. SPIRIVA [Suspect]

REACTIONS (1)
  - CAPSULE PHYSICAL ISSUE [None]
